FAERS Safety Report 6239643-1 (Version None)
Quarter: 2009Q2

REPORT INFORMATION
  Report Type: 
  Country: None (occurrence: None)
  Receive Date: 20090619
  Receipt Date: 20090604
  Transmission Date: 20091009
  Serious: Yes (Hospitalization, Other)
  Sender: FDA-Public Use
  Company Number: DE-1169838

PATIENT

DRUGS (1)
  1. FLUORESCITE [Suspect]
     Route: 040

REACTIONS (3)
  - APNOEA [None]
  - HYPERSENSITIVITY [None]
  - OEDEMA [None]
